FAERS Safety Report 7814725-9 (Version None)
Quarter: 2011Q4

REPORT INFORMATION
  Report Type: 
  Country: None (occurrence: None)
  Receive Date: 20111014
  Receipt Date: 20111003
  Transmission Date: 20120403
  Serious: Yes (Hospitalization, Other)
  Sender: FDA-Public Use
  Company Number: IT-ELI_LILLY_AND_COMPANY-IT201109006143

PATIENT
  Sex: Male

DRUGS (2)
  1. HEPARIN [Concomitant]
  2. EFFIENT [Suspect]
     Indication: ANGIOPLASTY
     Dosage: 60 MG, QD

REACTIONS (1)
  - CEREBELLAR ISCHAEMIA [None]
